FAERS Safety Report 10700458 (Version 2)
Quarter: 2015Q1

REPORT INFORMATION
  Report Type: Report from Study
  Country: FR (occurrence: FR)
  Receive Date: 20150109
  Receipt Date: 20150109
  Transmission Date: 20150721
  Serious: Yes (Death, Hospitalization)
  Sender: FDA-Public Use
  Company Number: FR-PFIZER INC-2014250607

PATIENT
  Age: 46 Year
  Sex: Male
  Weight: 52 kg

DRUGS (8)
  1. SUNITINIB MALATE [Suspect]
     Active Substance: SUNITINIB MALATE
     Indication: HEPATOCELLULAR CARCINOMA
     Dosage: 75 DF, CYCLIC
     Route: 048
     Dates: start: 20131022, end: 20131118
  2. SUNITINIB MALATE [Suspect]
     Active Substance: SUNITINIB MALATE
     Dosage: 2 DF, DAILY
     Route: 048
     Dates: start: 20131203, end: 20131226
  3. DOXORUBICIN HCL [Suspect]
     Active Substance: DOXORUBICIN HYDROCHLORIDE
     Indication: HEPATOCELLULAR CARCINOMA
     Dosage: UNK
     Route: 013
     Dates: start: 20131028
  4. DOXORUBICIN HCL [Suspect]
     Active Substance: DOXORUBICIN HYDROCHLORIDE
     Dosage: UNK
     Route: 013
     Dates: start: 20131209
  5. DOXORUBICIN HCL [Suspect]
     Active Substance: DOXORUBICIN HYDROCHLORIDE
     Dosage: UNK
     Route: 013
     Dates: start: 20140205
  6. GEMCITABINE HYDROCHLORIDE. [Concomitant]
     Active Substance: GEMCITABINE HYDROCHLORIDE
  7. OXALIPLATIN. [Concomitant]
     Active Substance: OXALIPLATIN
  8. SUNITINIB MALATE [Suspect]
     Active Substance: SUNITINIB MALATE
     Dosage: 75 MG, CYCLIC
     Route: 048
     Dates: start: 20140110, end: 20140206

REACTIONS (3)
  - Pyrexia [Recovered/Resolved]
  - Pulmonary embolism [Fatal]
  - VIIth nerve paralysis [Recovered/Resolved]

NARRATIVE: CASE EVENT DATE: 20140205
